FAERS Safety Report 7897886-5 (Version None)
Quarter: 2011Q4

REPORT INFORMATION
  Report Type: 
  Country: None (occurrence: None)
  Receive Date: 20111107
  Receipt Date: 20111103
  Transmission Date: 20120403
  Serious: Yes (Death, Other)
  Sender: FDA-Public Use
  Company Number: US-VERTEX PHARMACEUTICALS INC.-AE-2011-002727

PATIENT
  Age: 53 Year
  Sex: Male

DRUGS (3)
  1. PEGINTERFERON [Concomitant]
     Indication: HEPATITIS C
     Dates: start: 20110901
  2. INCIVEK [Suspect]
     Indication: HEPATITIS C
     Route: 048
     Dates: start: 20110901
  3. RIBAVIRIN [Concomitant]
     Indication: HEPATITIS C
     Dates: start: 20110901

REACTIONS (2)
  - COMPLETED SUICIDE [None]
  - DEPRESSION [None]
